FAERS Safety Report 8517410-3 (Version None)
Quarter: 2012Q3

REPORT INFORMATION
  Report Type: 
  Country: None (occurrence: None)
  Receive Date: 20120718
  Receipt Date: 20120716
  Transmission Date: 20120928
  Serious: Yes (Other)
  Sender: FDA-Public Use
  Company Number: SE-ROCHE-1088567

PATIENT
  Sex: Male

DRUGS (4)
  1. ISENTRESS [Concomitant]
  2. VALCYTE [Suspect]
     Indication: PRODUCT USED FOR UNKNOWN INDICATION
  3. TRUVADA [Concomitant]
  4. NOXAFIL [Concomitant]

REACTIONS (1)
  - SQUAMOUS CELL CARCINOMA [None]
